FAERS Safety Report 4764656-6 (Version None)
Quarter: 2005Q3

REPORT INFORMATION
  Report Type: 
  Country: None (occurrence: None)
  Receive Date: 20050909
  Receipt Date: 20050903
  Transmission Date: 20060218
  Serious: Yes (Other)
  Sender: FDA-Public Use
  Company Number: GB-GLAXOSMITHKLINE-B0392709A

PATIENT
  Age: 41 Year
  Sex: Male
  Weight: 95.25 kg

DRUGS (1)
  1. ZYBAN [Suspect]
     Indication: EX-SMOKER
     Dosage: 150MG TWICE PER DAY
     Route: 048
     Dates: start: 20050801, end: 20050805

REACTIONS (4)
  - ANAL HAEMORRHAGE [None]
  - DIARRHOEA [None]
  - DISCOMFORT [None]
  - HEADACHE [None]
